FAERS Safety Report 20160771 (Version 1)
Quarter: 2021Q4

REPORT INFORMATION
  Report Type: Spontaneous
  Country: CA (occurrence: CA)
  Receive Date: 20211208
  Receipt Date: 20211208
  Transmission Date: 20220303
  Serious: Yes (Death, Other)
  Sender: FDA-Public Use
  Company Number: CA-ELI_LILLY_AND_COMPANY-CA202112001843

PATIENT
  Age: 41 Year
  Sex: Female

DRUGS (7)
  1. DULOXETINE HYDROCHLORIDE [Suspect]
     Active Substance: DULOXETINE HYDROCHLORIDE
     Indication: Affective disorder
     Dosage: UNK UNK, UNKNOWN
     Route: 065
  2. CYCLOBENZAPRINE [Suspect]
     Active Substance: CYCLOBENZAPRINE
     Indication: Affective disorder
     Dosage: UNK UNK, UNKNOWN
     Route: 065
  3. LORAZEPAM [Suspect]
     Active Substance: LORAZEPAM
     Indication: Affective disorder
     Dosage: UNK UNK, UNKNOWN
     Route: 065
  4. OXYCONTIN [Suspect]
     Active Substance: OXYCODONE HYDROCHLORIDE
     Indication: Inflammatory bowel disease
     Dosage: 40 MG, UNKNOWN
     Route: 065
  5. QUETIAPINE [Suspect]
     Active Substance: QUETIAPINE
     Indication: Affective disorder
     Dosage: UNK UNK, UNKNOWN
     Route: 048
  6. TEMAZEPAM [Suspect]
     Active Substance: TEMAZEPAM
     Indication: Affective disorder
     Dosage: UNK UNK, UNKNOWN
     Route: 065
  7. COCAINE [Concomitant]
     Active Substance: COCAINE
     Indication: Product used for unknown indication

REACTIONS (6)
  - Multiple organ dysfunction syndrome [Fatal]
  - Toxicity to various agents [Fatal]
  - Loss of consciousness [Fatal]
  - Unresponsive to stimuli [Fatal]
  - Overdose [Fatal]
  - Off label use [Unknown]
